FAERS Safety Report 7553411-X (Version None)
Quarter: 2011Q2

REPORT INFORMATION
  Report Type: 
  Country: None (occurrence: None)
  Receive Date: 20110614
  Receipt Date: 20110614
  Transmission Date: 20111010
  Serious: Yes (Hospitalization)
  Sender: FDA-Public Use
  Company Number: None

PATIENT
  Age: 65 Year
  Sex: Male
  Weight: 99 kg

DRUGS (2)
  1. LENALIDOMIDE [Suspect]
     Indication: ACUTE MYELOID LEUKAEMIA
     Dosage: 50MG PO DAILY D1-28
     Dates: start: 20110525
  2. AZACITIDINE [Suspect]
     Dosage: 25MG/M2 D1-D5
     Dates: start: 20110525, end: 20110529

REACTIONS (4)
  - PRODUCTIVE COUGH [None]
  - PYREXIA [None]
  - ENTEROCOCCUS TEST POSITIVE [None]
  - DIARRHOEA [None]
